FAERS Safety Report 7543605-1 (Version None)
Quarter: 2011Q2

REPORT INFORMATION
  Report Type: 
  Country: None (occurrence: None)
  Receive Date: 20110613
  Receipt Date: 20021108
  Transmission Date: 20111010
  Serious: Yes (Death)
  Sender: FDA-Public Use
  Company Number: PHFR2002GB02684

PATIENT
  Sex: Male

DRUGS (4)
  1. PAROXETINE HYDROCHLORIDE [Concomitant]
     Dosage: 20 MG, QD
     Route: 048
     Dates: start: 19990101
  2. RISPERIDONE [Concomitant]
     Dosage: 4 MG, QD
     Route: 048
     Dates: start: 19970101
  3. CLOZAPINE [Suspect]
     Indication: SCHIZOPHRENIA
     Dosage: 625 MG, QD
     Route: 048
     Dates: start: 19950606
  4. VALPROATE SODIUM [Concomitant]
     Dosage: 1000 MG, QD
     Route: 048
     Dates: start: 19970101

REACTIONS (3)
  - SLEEP APNOEA SYNDROME [None]
  - EPILEPSY [None]
  - CIRCULATORY COLLAPSE [None]
